FAERS Safety Report 8152564-2 (Version None)
Quarter: 2012Q1

REPORT INFORMATION
  Report Type: 
  Country: None (occurrence: None)
  Receive Date: 20120221
  Receipt Date: 20120213
  Transmission Date: 20120608
  Serious: Yes (Hospitalization)
  Sender: FDA-Public Use
  Company Number: BR-BRISTOL-MYERS SQUIBB COMPANY-16399040

PATIENT
  Age: 67 Year
  Sex: Male

DRUGS (3)
  1. IMIPENEM [Concomitant]
  2. IPILIMUMAB [Suspect]
     Indication: MALIGNANT MELANOMA
     Route: 042
     Dates: start: 20120126
  3. DEXAMETHASONE [Concomitant]

REACTIONS (1)
  - PYREXIA [None]
